FAERS Safety Report 4738759-6 (Version None)
Quarter: 2005Q3

REPORT INFORMATION
  Report Type: 
  Country: None (occurrence: None)
  Receive Date: 20050804
  Receipt Date: 20050725
  Transmission Date: 20060218
  Serious: Yes (Hospitalization, Other)
  Sender: FDA-Public Use
  Company Number: 2005088980

PATIENT
  Age: 26 Year
  Sex: Male
  Weight: 70 kg

DRUGS (8)
  1. ZYVOX [Suspect]
     Indication: ILL-DEFINED DISORDER
     Dosage: 600 MG (600 MG, DAILY), ORAL
     Route: 048
     Dates: start: 20050201
  2. PARA-AMINOSALICYLIQUE ACID (AMINOSALICYLIC ACID) [Suspect]
     Indication: ILL-DEFINED DISORDER
     Dosage: 10 GRAM (DAILY), ORAL
     Route: 048
     Dates: start: 20050201
  3. ETHAMBUTOL (ETHAMBUTOL) [Suspect]
     Indication: ILL-DEFINED DISORDER
     Dosage: 1500 MG (DAILY), ORAL
     Route: 048
     Dates: start: 20050201
  4. ONDANSETRON (ONDANSETRON0 [Suspect]
     Indication: ILL-DEFINED DISORDER
     Dosage: ORAL
     Route: 048
     Dates: start: 20050301, end: 20050605
  5. CAPREOMYCIN (CAPREOMYCIN) [Suspect]
     Indication: ILL-DEFINED DISORDER
     Dosage: 1 GRAM (TID), INTRAVENOUS
     Route: 042
     Dates: start: 20050201
  6. ONDANSETRON(ONDANSETRON) [Concomitant]
  7. PYRAZINAMIDE [Concomitant]
  8. SODIUM(AMINOSALICYLATE SODIUM) [Concomitant]

REACTIONS (11)
  - AMYLOIDOSIS [None]
  - ANAEMIA [None]
  - ARRHYTHMIA [None]
  - ATRIOVENTRICULAR BLOCK SECOND DEGREE [None]
  - DIZZINESS [None]
  - LOSS OF CONSCIOUSNESS [None]
  - MITOCHONDRIAL TOXICITY [None]
  - NAUSEA [None]
  - SYNCOPE [None]
  - VERTIGO [None]
  - VOMITING [None]
